FAERS Safety Report 21771531 (Version 1)
Quarter: 2022Q4

REPORT INFORMATION
  Report Type: Spontaneous
  Country: US (occurrence: None)
  Receive Date: 20221222
  Receipt Date: 20221222
  Transmission Date: 20230112
  Serious: Yes (Hospitalization)
  Sender: FDA-Public Use
  Company Number: None

PATIENT
  Age: 67 Year
  Sex: Female
  Weight: 95.71 kg

DRUGS (12)
  1. LENALIDOMIDE [Suspect]
     Active Substance: LENALIDOMIDE
     Indication: Neoplasm malignant
     Dosage: OTHER FREQUENCY : 14D ON 7D OFF;?
     Route: 048
     Dates: start: 202211
  2. AMARYL [Concomitant]
     Active Substance: GLIMEPIRIDE
  3. BACLOFEN [Concomitant]
     Active Substance: BACLOFEN
  4. CALTRATE [Concomitant]
     Active Substance: CALCIUM CARBONATE
  5. FARXIGA [Concomitant]
     Active Substance: DAPAGLIFLOZIN PROPANEDIOL
  6. HYDROCHLOROTHIAZIDE [Concomitant]
     Active Substance: HYDROCHLOROTHIAZIDE
  7. LEVOXYL [Concomitant]
     Active Substance: LEVOTHYROXINE SODIUM
  8. METFORMIN [Concomitant]
     Active Substance: METFORMIN HYDROCHLORIDE
  9. PROAIR HFA [Concomitant]
     Active Substance: ALBUTEROL SULFATE
  10. PROMETHAZINE [Concomitant]
     Active Substance: PROMETHAZINE HYDROCHLORIDE
  11. SIMVASTATIN [Concomitant]
     Active Substance: SIMVASTATIN
  12. TRAMADOL [Concomitant]
     Active Substance: TRAMADOL

REACTIONS (1)
  - Pneumonia [None]
